FAERS Safety Report 5647012-8 (Version None)
Quarter: 2008Q1

REPORT INFORMATION
  Report Type: 
  Country: None (occurrence: None)
  Receive Date: 20080303
  Receipt Date: 20080227
  Transmission Date: 20080703
  Serious: Yes (Life-Threatening)
  Sender: FDA-Public Use
  Company Number: B0510000A

PATIENT
  Age: 35 Year
  Sex: Male
  Weight: 60 kg

DRUGS (4)
  1. KIVEXA [Suspect]
     Dates: start: 20071022
  2. MDA [Suspect]
     Dates: start: 20080209, end: 20080209
  3. NEVIRAPINE [Concomitant]
  4. COMBIVIR [Concomitant]
     Dates: end: 20071001

REACTIONS (1)
  - MYOCARDIAL INFARCTION [None]
